FAERS Safety Report 12449686 (Version 2)
Quarter: 2016Q2

REPORT INFORMATION
  Report Type: Spontaneous
  Country: US (occurrence: US)
  Receive Date: 20160609
  Receipt Date: 20160616
  Transmission Date: 20160815
  Serious: Yes (Death, Other)
  Sender: FDA-Public Use
  Company Number: US-CIPLA LTD.-2016US06412

PATIENT

DRUGS (16)
  1. BUSULFAN. [Suspect]
     Active Substance: BUSULFAN
     Indication: LYMPHOMA
     Dosage: 32 MG/M2, OVER 60 MINUTES DURING THE PREADMISSION WEEK
     Route: 042
  2. BUSULFAN. [Suspect]
     Active Substance: BUSULFAN
     Dosage: 100 MG/M2, DAILY
     Route: 065
  3. MELPHALAN [Suspect]
     Active Substance: MELPHALAN
     Indication: LYMPHOMA
     Dosage: 60 MG/M2, DAILY OVER 30 MINUTES ON DAYS -3 AND -2
     Route: 065
  4. RITUXIMAB [Suspect]
     Active Substance: RITUXIMAB
     Indication: LYMPHOMA
     Dosage: UNK, ON DAY -9
     Route: 065
  5. CALCIUM/PHOSPHATE [Concomitant]
     Indication: SUPPORTIVE CARE
     Dosage: UNK
     Route: 048
  6. AZACITIDINE. [Suspect]
     Active Substance: AZACITIDINE
     Indication: LYMPHOMA
     Dosage: 35 MG/M2, DAILY ON DAYS -11 THROUGH -2
     Route: 042
  7. GLUTAMINE [Concomitant]
     Active Substance: GLUTAMINE
     Indication: SUPPORTIVE CARE
     Dosage: UNK
     Route: 048
  8. FILGRASTIM [Concomitant]
     Active Substance: FILGRASTIM
     Indication: SUPPORTIVE CARE
     Dosage: UNK
     Route: 065
  9. VORINOSTAT [Suspect]
     Active Substance: VORINOSTAT
     Indication: LYMPHOMA
     Dosage: 1000 MG DAILY WITHIN 1 HOUR BEFORE THE START OF CHEMOTHERAPY ON DAYS -11 THROUGH -2
     Route: 048
  10. GEMCITABINE [Suspect]
     Active Substance: GEMCITABINE\GEMCITABINE HYDROCHLORIDE
     Indication: LYMPHOMA
     Dosage: 75 MG/M2, ON DAYS -8 AND -3 AS A LOADING BOLUS
     Route: 065
  11. BUSULFAN. [Suspect]
     Active Substance: BUSULFAN
     Dosage: 4000 ?M-MIN/D, DAILY OVER 3 HOURS ON DAYS -8 THROUGH -5
  12. DEXAMETHASONE. [Concomitant]
     Active Substance: DEXAMETHASONE
     Indication: SUPPORTIVE CARE
     Dosage: UNK
     Route: 065
  13. PERIPHERAL BLOOD PROGENITOR CELLS [Concomitant]
     Indication: SUPPORTIVE CARE
     Dosage: UNK
     Route: 065
  14. GEMCITABINE [Suspect]
     Active Substance: GEMCITABINE\GEMCITABINE HYDROCHLORIDE
     Dosage: 2700 MG/M2, CONTINUOUS INFUSION OVER 4.5 HOURS (10 MG/M2 PER MINUTE)
  15. PHENYTOIN. [Concomitant]
     Active Substance: PHENYTOIN
     Indication: SUPPORTIVE CARE
     Dosage: UNK
     Route: 065
  16. PALIFERMIN [Concomitant]
     Active Substance: PALIFERMIN
     Indication: SUPPORTIVE CARE
     Dosage: UNK
     Route: 048

REACTIONS (3)
  - Sepsis [Fatal]
  - Gastroenteritis norovirus [Fatal]
  - Febrile neutropenia [Unknown]
